FAERS Safety Report 8988231 (Version 1)
Quarter: 2012Q4

REPORT INFORMATION
  Report Type: 
  Country: BR (occurrence: BR)
  Receive Date: 20121227
  Receipt Date: 20121227
  Transmission Date: 20130627
  Serious: Yes (Hospitalization, Other)
  Sender: FDA-Public Use
  Company Number: BR-ROCHE-1170464

PATIENT
  Sex: Male

DRUGS (9)
  1. PEGASYS [Suspect]
     Indication: HEPATITIS C
     Route: 065
  2. RIBAVIRIN [Suspect]
     Indication: HEPATITIS C
     Route: 048
  3. VICTRELIS [Suspect]
     Indication: HEPATITIS C
     Route: 065
  4. FILGRASTIM [Concomitant]
     Route: 030
  5. PROPRANOLOL [Concomitant]
     Route: 065
  6. OMEPRAZOLE [Concomitant]
     Route: 065
  7. FUROSEMIDE [Concomitant]
     Indication: POLYURIA
  8. INSULIN NPH [Concomitant]
  9. INSULIN [Concomitant]

REACTIONS (13)
  - Pancreatic insufficiency [Unknown]
  - Hepatic function abnormal [Unknown]
  - Splenomegaly [Unknown]
  - Hepatic neoplasm [Not Recovered/Not Resolved]
  - Inguinal hernia [Unknown]
  - Thrombocytopenia [Recovered/Resolved]
  - Hypersensitivity [Unknown]
  - Insomnia [Unknown]
  - Diabetes mellitus [Unknown]
  - Amnesia [Recovered/Resolved]
  - Diarrhoea [Not Recovered/Not Resolved]
  - Nausea [Recovered/Resolved]
  - Ascites [Unknown]
